FAERS Safety Report 6401873-3 (Version None)
Quarter: 2009Q4

REPORT INFORMATION
  Report Type: 
  Country: None (occurrence: None)
  Receive Date: 20091013
  Receipt Date: 20091013
  Transmission Date: 20100525
  Serious: Yes (Life-Threatening)
  Sender: FDA-Public Use
  Company Number: None

PATIENT
  Age: 63 Year
  Sex: Male
  Weight: 81.6475 kg

DRUGS (2)
  1. ADVAIR DISKUS 100/50 [Suspect]
     Indication: ASTHMA
     Dosage: ONE INHALATION TWICE DAILY INHAL
     Route: 055
     Dates: start: 20020917, end: 20060310
  2. ADVAIR DISKUS 500/50 [Suspect]
     Indication: EMPHYSEMA
     Dosage: ONE INHALATION TWICE DAILY INHAL
     Route: 055

REACTIONS (5)
  - ACTIVITIES OF DAILY LIVING IMPAIRED [None]
  - DISBACTERIOSIS [None]
  - INSOMNIA [None]
  - PRODUCTIVE COUGH [None]
  - TREATMENT NONCOMPLIANCE [None]
